FAERS Safety Report 16230762 (Version 1)
Quarter: 2019Q2

REPORT INFORMATION
  Report Type: Spontaneous
  Country: US (occurrence: US)
  Receive Date: 20190423
  Receipt Date: 20190423
  Transmission Date: 20190711
  Serious: Yes (Other)
  Sender: FDA-Public Use
  Company Number: PHEH2019US016781

PATIENT
  Age: 80 Year
  Sex: Female

DRUGS (1)
  1. TAFINLAR [Suspect]
     Active Substance: DABRAFENIB MESYLATE
     Indication: NON-SMALL CELL LUNG CANCER METASTATIC
     Dosage: 150 MG, BID
     Route: 048

REACTIONS (2)
  - Retinal artery occlusion [Unknown]
  - Vision blurred [Unknown]
